FAERS Safety Report 10246227 (Version 1)
Quarter: 2014Q2

REPORT INFORMATION
  Report Type: Report from Study
  Country: JP (occurrence: JP)
  Receive Date: 20140619
  Receipt Date: 20140619
  Transmission Date: 20141212
  Serious: Yes (Life-Threatening)
  Sender: FDA-Public Use
  Company Number: JP-AMGEN-JPNCT2014045868

PATIENT
  Age: 45 Year
  Sex: Female
  Weight: 52 kg

DRUGS (13)
  1. ROMIPLOSTIM - KHK [Suspect]
     Indication: IMMUNE THROMBOCYTOPENIC PURPURA
     Dosage: 5 MUG/KG, QWK
     Route: 058
     Dates: start: 20130527, end: 20130806
  2. PREDNISOLONE [Concomitant]
     Indication: IMMUNE THROMBOCYTOPENIC PURPURA
     Dosage: 4 MG, UNK
     Route: 048
     Dates: start: 20130516
  3. IMURAN                             /00001501/ [Concomitant]
     Indication: IMMUNE THROMBOCYTOPENIC PURPURA
     Dosage: 100 MG, UNK
     Route: 048
     Dates: start: 20130527, end: 20130731
  4. NEORAL [Concomitant]
     Indication: IMMUNE THROMBOCYTOPENIC PURPURA
     Dosage: 100 MG, UNK
     Route: 048
     Dates: start: 20130801, end: 20130826
  5. NEXIUM                             /01479302/ [Concomitant]
     Indication: PROPHYLAXIS
     Dosage: UNK
     Route: 048
  6. MUCOSTA [Concomitant]
     Indication: PROPHYLAXIS
     Dosage: UNK
     Route: 048
  7. BAKTAR [Concomitant]
     Indication: PROPHYLAXIS
     Dosage: UNK
     Route: 048
  8. PANTOSIN [Concomitant]
     Indication: CONSTIPATION
     Dosage: UNK
     Route: 065
  9. MAGLAX [Concomitant]
     Indication: CONSTIPATION
     Dosage: UNK
     Route: 048
  10. LASIX                              /00032601/ [Concomitant]
     Indication: OEDEMA
     Dosage: UNK
     Route: 048
  11. ALDACTONE A [Concomitant]
     Indication: OEDEMA
     Dosage: UNK
     Route: 048
  12. ITRIZOLE [Concomitant]
     Indication: PULMONARY MYCOSIS
     Dosage: UNK
     Route: 048
  13. CRAVIT [Concomitant]
     Indication: BRONCHITIS
     Dosage: UNK
     Route: 048

REACTIONS (4)
  - Small intestinal perforation [Recovered/Resolved]
  - Hyperglycaemia [Recovered/Resolved]
  - White blood cell count decreased [Recovered/Resolved]
  - Oedema [Recovering/Resolving]
